FAERS Safety Report 7505899-8 (Version None)
Quarter: 2011Q2

REPORT INFORMATION
  Report Type: 
  Country: None (occurrence: None)
  Receive Date: 20110526
  Receipt Date: 20110517
  Transmission Date: 20111010
  Serious: Yes (Hospitalization, Other)
  Sender: FDA-Public Use
  Company Number: US-ASTRAZENECA-2011SE30046

PATIENT
  Age: 555 Month
  Sex: Female

DRUGS (2)
  1. NEXIUM [Suspect]
     Indication: GASTROOESOPHAGEAL REFLUX DISEASE
     Route: 048
  2. NEXIUM [Suspect]
     Route: 048

REACTIONS (8)
  - LOSS OF CONSCIOUSNESS [None]
  - ABDOMINAL DISCOMFORT [None]
  - FULL BLOOD COUNT DECREASED [None]
  - TRANSFUSION [None]
  - INCORRECT DRUG ADMINISTRATION DURATION [None]
  - BLOOD IRON DECREASED [None]
  - HAEMORRHAGE [None]
  - GASTROINTESTINAL HAEMORRHAGE [None]
